FAERS Safety Report 7375481-4 (Version None)
Quarter: 2011Q1

REPORT INFORMATION
  Report Type: 
  Country: None (occurrence: None)
  Receive Date: 20110325
  Receipt Date: 20110321
  Transmission Date: 20110831
  Serious: Yes (Hospitalization)
  Sender: FDA-Public Use
  Company Number: FR-PFIZER INC-2011061039

PATIENT
  Age: 3 Year
  Sex: Female

DRUGS (2)
  1. ADVIL LIQUI-GELS [Suspect]
     Indication: PYREXIA
     Dosage: UNK
     Route: 048
     Dates: start: 20110118, end: 20110123
  2. ACETAMINOPHEN [Concomitant]
     Dosage: UNK
     Dates: start: 20110118

REACTIONS (2)
  - INFECTION [None]
  - PLEURISY [None]
